FAERS Safety Report 19684262 (Version 1)
Quarter: 2021Q3

REPORT INFORMATION
  Report Type: Spontaneous
  Country: US (occurrence: US)
  Receive Date: 20210810
  Receipt Date: 20210810
  Transmission Date: 20211014
  Serious: Yes (Hospitalization, Disabling, Other)
  Sender: FDA-Public Use
  Company Number: None

PATIENT
  Age: 5 Year
  Sex: Male
  Weight: 16.8 kg

DRUGS (5)
  1. ACETAMINOPHEN. [Concomitant]
     Active Substance: ACETAMINOPHEN
     Dates: start: 20210409, end: 20210425
  2. ANAVIP [Suspect]
     Active Substance: PIT VIPER (CROTALINAE) IMMUNE GLOBULIN ANTIVENIN (EQUINE)
     Indication: SNAKE BITE
     Route: 042
     Dates: start: 20210409, end: 20210409
  3. MORPHINE [Concomitant]
     Active Substance: MORPHINE
     Dates: start: 20210409, end: 20210409
  4. ONDANSETRON [Concomitant]
     Active Substance: ONDANSETRON
     Dates: start: 20210409, end: 20210409
  5. SODIUM CHLORIDE NS [Concomitant]
     Dates: start: 20210409, end: 20210409

REACTIONS (6)
  - Skin graft [None]
  - Oedema [None]
  - Therapeutic product effect decreased [None]
  - Condition aggravated [None]
  - Bullous haemorrhagic dermatosis [None]
  - Skin necrosis [None]

NARRATIVE: CASE EVENT DATE: 20210409
